FAERS Safety Report 6244547-4 (Version None)
Quarter: 2009Q2

REPORT INFORMATION
  Report Type: 
  Country: None (occurrence: None)
  Receive Date: 20090623
  Receipt Date: 20090623
  Transmission Date: 20091009
  Serious: No
  Sender: FDA-Public Use
  Company Number: None

PATIENT
  Age: 61 Year
  Sex: Male
  Weight: 83.9154 kg

DRUGS (2)
  1. ZICAM NASAL SWABS [Suspect]
     Indication: AGEUSIA
     Dosage: Q TIP SWAB SATURATED EVERY 4 HRS NASAL
     Route: 045
     Dates: start: 20090529, end: 20090531
  2. ZICAM NASAL SWABS [Suspect]
     Indication: ANOSMIA
     Dosage: Q TIP SWAB SATURATED EVERY 4 HRS NASAL
     Route: 045
     Dates: start: 20090529, end: 20090531

REACTIONS (2)
  - ANOSMIA [None]
  - HYPOGEUSIA [None]
